FAERS Safety Report 9473221 (Version 1)
Quarter: 2013Q3

REPORT INFORMATION
  Report Type: Spontaneous
  Country: US (occurrence: US)
  Receive Date: 20130823
  Receipt Date: 20130823
  Transmission Date: 20140515
  Serious: Yes (Life-Threatening, Hospitalization)
  Sender: FDA-Public Use
  Company Number: US-BRISTOL-MYERS SQUIBB COMPANY-18788570

PATIENT
  Age: 48 Year
  Sex: Female

DRUGS (2)
  1. SPRYCEL (CML) TABS 70 MG [Suspect]
     Indication: CHRONIC MYELOID LEUKAEMIA
     Dosage: INITIALLY 140 MG; INTERRUPTED AND RESTARTED AT 70MG.
  2. IMATINIB MESILATE [Concomitant]
     Indication: CHRONIC MYELOID LEUKAEMIA

REACTIONS (4)
  - Pulmonary alveolar haemorrhage [Unknown]
  - Thrombocytopenia [Unknown]
  - Pleural effusion [Unknown]
  - Respiratory tract infection [Unknown]
